FAERS Safety Report 9173745 (Version 3)
Quarter: 2013Q2

REPORT INFORMATION
  Report Type: Report from Study
  Country: CA (occurrence: CA)
  Receive Date: 20130320
  Receipt Date: 20130523
  Transmission Date: 20140414
  Serious: Yes (Hospitalization, Other)
  Sender: FDA-Public Use
  Company Number: CA-JNJFOC-20130305388

PATIENT
  Age: 36 Year
  Sex: Female
  Weight: 89 kg

DRUGS (7)
  1. REMICADE [Suspect]
     Indication: COLITIS ULCERATIVE
     Dosage: 6TH INFUSION
     Route: 042
     Dates: start: 20130307
  2. REMICADE [Suspect]
     Indication: COLITIS ULCERATIVE
     Route: 042
     Dates: start: 20130103
  3. REMICADE [Suspect]
     Indication: COLITIS ULCERATIVE
     Route: 042
     Dates: start: 20120623
  4. REMICADE [Suspect]
     Indication: COLITIS ULCERATIVE
     Route: 042
     Dates: start: 20120103
  5. IMURAN [Concomitant]
     Route: 048
  6. CIPROLEX [Concomitant]
     Route: 048
  7. AVAMYS [Concomitant]
     Route: 065

REACTIONS (5)
  - Urogenital prolapse [Recovered/Resolved]
  - Urine analysis abnormal [Recovered/Resolved]
  - Headache [Not Recovered/Not Resolved]
  - Malaise [Recovered/Resolved]
  - Infusion related reaction [Not Recovered/Not Resolved]
